FAERS Safety Report 22884082 (Version 2)
Quarter: 2023Q4

REPORT INFORMATION
  Report Type: Spontaneous
  Country: AT (occurrence: AT)
  Receive Date: 20230830
  Receipt Date: 20231105
  Transmission Date: 20240109
  Serious: Yes (Death)
  Sender: FDA-Public Use
  Company Number: AT-JNJFOC-20230856001

PATIENT
  Age: 8 Decade
  Sex: Male

DRUGS (1)
  1. TALQUETAMAB [Suspect]
     Active Substance: TALQUETAMAB
     Indication: Plasma cell myeloma refractory
     Route: 065
     Dates: start: 20230724, end: 20230808

REACTIONS (1)
  - Death [Fatal]
